FAERS Safety Report 9937617 (Version 2)
Quarter: 2014Q1

REPORT INFORMATION
  Report Type: Report from Study
  Country: CA (occurrence: CA)
  Receive Date: 20140303
  Receipt Date: 20140310
  Transmission Date: 20141002
  Serious: Yes (Hospitalization)
  Sender: FDA-Public Use
  Company Number: CA-ROCHE-1354212

PATIENT
  Sex: Male

DRUGS (10)
  1. RITUXAN [Suspect]
     Indication: GRAFT VERSUS HOST DISEASE
     Dosage: 19/FEB/2014: RECEIVED THE RECENT DOSE
     Route: 042
     Dates: start: 20140129
  2. PREDNISONE [Suspect]
     Indication: PRODUCT USED FOR UNKNOWN INDICATION
     Route: 065
  3. BUDESONIDE [Concomitant]
  4. BETNESOL [Concomitant]
  5. ACYCLOVIR [Concomitant]
  6. PENTAMIDINE [Concomitant]
     Dosage: MAY START
     Route: 065
  7. NYSTATIN [Concomitant]
     Dosage: MOUTH WASH
     Route: 065
  8. URSODIOL [Concomitant]
  9. ZOPICLONE [Concomitant]
  10. INSULIN [Concomitant]

REACTIONS (4)
  - Pain [Not Recovered/Not Resolved]
  - Fall [Unknown]
  - Asthenia [Unknown]
  - Off label use [Unknown]
